FAERS Safety Report 8257026-X (Version None)
Quarter: 2012Q2

REPORT INFORMATION
  Report Type: 
  Country: None (occurrence: None)
  Receive Date: 20120403
  Receipt Date: 20120313
  Transmission Date: 20120825
  Serious: Yes (Hospitalization)
  Sender: FDA-Public Use
  Company Number: US-GLAXOSMITHKLINE-A0969663A

PATIENT
  Age: 72 Year
  Sex: Female

DRUGS (7)
  1. ASPIRIN [Concomitant]
  2. UNKNOWN BLOOD PRESSURE MEDICATION [Concomitant]
  3. TYKERB [Suspect]
     Indication: BREAST CANCER
     Dosage: 4TAB PER DAY
     Route: 048
     Dates: start: 20120307
  4. STEROID [Concomitant]
  5. XELODA [Suspect]
     Dosage: 2TAB TWICE PER DAY
     Dates: start: 20120307
  6. POTASSIUM CHLORIDE [Concomitant]
  7. DIURETIC [Concomitant]

REACTIONS (3)
  - EPISTAXIS [None]
  - DEVICE RELATED INFECTION [None]
  - BACK PAIN [None]
